FAERS Safety Report 6070230-4 (Version None)
Quarter: 2009Q1

REPORT INFORMATION
  Report Type: 
  Country: None (occurrence: None)
  Receive Date: 20090209
  Receipt Date: 20090128
  Transmission Date: 20090719
  Serious: No
  Sender: FDA-Public Use
  Company Number: US-ROCHE-593282

PATIENT
  Sex: Female

DRUGS (3)
  1. ACCUTANE [Suspect]
     Indication: DRUG USE FOR UNKNOWN INDICATION
     Route: 065
     Dates: start: 20080101, end: 20080601
  2. CLARAVIS [Suspect]
     Indication: DRUG USE FOR UNKNOWN INDICATION
     Dosage: THE PATIENT WAS DISPENSED CLARAVIS 20MG CAPSULE ON 15 FEB 08, 11 MAR 08, 7 APR 2008 AND 6 MAY 08.
     Route: 065
  3. CLARAVIS [Suspect]
     Dosage: THE PATIENT WAS DISPENSED WITH CLARAVIS 40 MG CAPSULES ON 09 OCT 2006 AND 08 NOV 2006.
     Route: 065

REACTIONS (2)
  - NO ADVERSE EVENT [None]
  - PREGNANCY [None]
